FAERS Safety Report 15779482 (Version 3)
Quarter: 2019Q1

REPORT INFORMATION
  Report Type: Report from Study
  Country: DE (occurrence: DE)
  Receive Date: 20190101
  Receipt Date: 20190116
  Transmission Date: 20190417
  Serious: Yes (Life-Threatening, Hospitalization, Other)
  Sender: FDA-Public Use
  Company Number: DE-ROCHE-2013708

PATIENT
  Age: 59 Year
  Sex: Female
  Weight: 73 kg

DRUGS (16)
  1. OBINUTUZUMAB. [Suspect]
     Active Substance: OBINUTUZUMAB
     Indication: B-CELL LYMPHOMA
     Dosage: RECEIVED THE MOST RECENT DOSE OF OBINUTUZUMAB ON 10/OCT/2017?MOST RECENT DOSE PRIOR TO SAE19/DEC/201
     Route: 041
     Dates: start: 20161124, end: 20171219
  2. PARACETAMOL [Concomitant]
     Active Substance: ACETAMINOPHEN
     Dosage: PREMEDICATION
     Route: 065
     Dates: start: 20161124
  3. RANITIC [Concomitant]
     Active Substance: RANITIDINE HYDROCHLORIDE
     Dosage: PREMEDICATION
     Route: 065
     Dates: start: 20161124
  4. FOLIC ACID. [Concomitant]
     Active Substance: FOLIC ACID
     Route: 065
     Dates: start: 201807
  5. OBINUTUZUMAB. [Suspect]
     Active Substance: OBINUTUZUMAB
     Dosage: RECEIVED THE MOST RECENT DOSE OF OBINUTUZUMAB ON 10/OCT/2017?MOST RECENT DOSE PRIOR TO SAE 19/DEC/20
     Route: 041
     Dates: start: 20180329
  6. FENISTIL (GERMANY) [Concomitant]
     Active Substance: DIMETHINDENE MALEATE
     Dosage: PREMEDICATION
     Route: 065
     Dates: start: 20161124
  7. RAMIPRIL. [Concomitant]
     Active Substance: RAMIPRIL
     Indication: HYPERTENSION
     Dosage: PREMEDICATION
     Route: 065
     Dates: start: 20160101
  8. TRAMADOL. [Concomitant]
     Active Substance: TRAMADOL
     Route: 065
     Dates: start: 20180701
  9. OBINUTUZUMAB. [Suspect]
     Active Substance: OBINUTUZUMAB
     Dosage: RECEIVED THE MOST RECENT DOSE OF OBINUTUZUMAB ON 10/OCT/2017?MOST RECENT DOSE PRIOR TO SAE 19/DEC/20
     Route: 041
     Dates: start: 20180524
  10. IBRUTINIB [Suspect]
     Active Substance: IBRUTINIB
     Route: 048
     Dates: start: 20171227, end: 20171229
  11. PREDNISOLON [Concomitant]
     Active Substance: PREDNISOLONE
     Dosage: PREMEDICATION
     Route: 065
     Dates: start: 20161124
  12. IBRUTINIB [Suspect]
     Active Substance: IBRUTINIB
     Dosage: MOST RECENT DOSE PRIOR TO SAE 27/DEC/2017
     Route: 048
     Dates: start: 20171220, end: 20171227
  13. OBINUTUZUMAB. [Suspect]
     Active Substance: OBINUTUZUMAB
     Route: 041
     Dates: start: 20181122
  14. AMLODIPIN [Concomitant]
     Active Substance: AMLODIPINE BESYLATE
     Indication: HYPERTENSION
     Route: 065
     Dates: start: 20160101
  15. IBRUTINIB [Suspect]
     Active Substance: IBRUTINIB
     Indication: B-CELL LYMPHOMA
     Dosage: RECEIVED THE MOST RECENT DOSE OF IBRUTINIB ON 21/OCT/2017?DOSE REDUCED LATER ON AFTER END OF REACTIO
     Route: 048
     Dates: start: 20161124, end: 20171203
  16. IBRUTINIB [Suspect]
     Active Substance: IBRUTINIB
     Route: 048
     Dates: start: 20180127, end: 20180201

REACTIONS (5)
  - Sepsis [Recovered/Resolved]
  - Urosepsis [Recovered/Resolved]
  - Pneumonia [Recovered/Resolved]
  - Bronchitis [Recovered/Resolved]
  - Pneumonia [Recovered/Resolved]

NARRATIVE: CASE EVENT DATE: 20171021
